FAERS Safety Report 10158636 (Version 1)
Quarter: 2014Q2

REPORT INFORMATION
  Report Type: Spontaneous
  Country: US (occurrence: US)
  Receive Date: 20140508
  Receipt Date: 20140508
  Transmission Date: 20141212
  Serious: Yes (Other)
  Sender: FDA-Public Use
  Company Number: US-AMGEN-USASP2014032070

PATIENT
  Age: 60 Year
  Sex: Female

DRUGS (4)
  1. PROLIA [Suspect]
     Indication: OSTEOPENIA
     Dosage: UNK
     Route: 065
     Dates: start: 201312
  2. CALCIUM [Concomitant]
  3. VITAMIN D                          /00107901/ [Concomitant]
  4. PROBIOTIC                          /06395501/ [Concomitant]

REACTIONS (1)
  - Osteoarthritis [Unknown]
